FAERS Safety Report 21587942 (Version 2)
Quarter: 2022Q4

REPORT INFORMATION
  Report Type: Report from Study
  Country: US (occurrence: US)
  Receive Date: 20221114
  Receipt Date: 20221117
  Transmission Date: 20230113
  Serious: No
  Sender: FDA-Public Use
  Company Number: US-ABBVIE-22K-163-4450721-00

PATIENT
  Sex: Male

DRUGS (5)
  1. SKYRIZI [Suspect]
     Active Substance: RISANKIZUMAB-RZAA
     Indication: Psoriasis
     Dosage: WEEK 0, ONE IN ONCE, THERAPY START DATE 5 MAY 2022?STRENGTH- 150 MILLIGRAM
     Route: 058
     Dates: start: 202205, end: 202205
  2. SKYRIZI [Suspect]
     Active Substance: RISANKIZUMAB-RZAA
     Dosage: WEEK 0, ONE IN ONCE, THERAPY STARTED ON AN UNSPECIFIED DATE OF 2022?STRENGTH- 150 MILLIGRAM
     Route: 058
     Dates: start: 2022, end: 2022
  3. SKYRIZI [Suspect]
     Active Substance: RISANKIZUMAB-RZAA
     Dosage: WEEK 4, THERAPY STARTED ON AN UNSPECIFIED DATE OF 2022?STRENGTH- 150 MILLIGRAM
     Route: 058
  4. SKYRIZI [Suspect]
     Active Substance: RISANKIZUMAB-RZAA
     Dosage: STRENGTH- 150 MILLIGRAM
     Route: 058
  5. TYLENOL [Concomitant]
     Active Substance: ACETAMINOPHEN
     Indication: Product used for unknown indication

REACTIONS (6)
  - Fatigue [Recovering/Resolving]
  - Middle insomnia [Unknown]
  - Psoriasis [Unknown]
  - Nasopharyngitis [Not Recovered/Not Resolved]
  - Skin laceration [Unknown]
  - Bone pain [Unknown]

NARRATIVE: CASE EVENT DATE: 20220101
